FAERS Safety Report 16691792 (Version 4)
Quarter: 2019Q4

REPORT INFORMATION
  Report Type: Spontaneous
  Country: US (occurrence: US)
  Receive Date: 20190812
  Receipt Date: 20191007
  Transmission Date: 20200122
  Serious: Yes (Death, Hospitalization)
  Sender: FDA-Public Use
  Company Number: US-GW PHARMA-201907USGW2656

PATIENT

DRUGS (8)
  1. LAMICTAL [Concomitant]
     Active Substance: LAMOTRIGINE
     Indication: EPILEPSY
     Dosage: 4 MG/KG/DAY, 30 MILLIGRAM, BID
  2. TRILEPTAL [Concomitant]
     Active Substance: OXCARBAZEPINE
     Indication: EPILEPSY
     Dosage: 360 MILLIGRAM, BID
     Dates: end: 2019
  3. TOPAMAX [Concomitant]
     Active Substance: TOPIRAMATE
     Indication: EPILEPSY
     Dosage: 1.6 MG/KG/DAY, 12 MILLIGRAM, BID
  4. MIRALAX [Concomitant]
     Active Substance: POLYETHYLENE GLYCOL 3350
     Indication: CONSTIPATION
     Dosage: UNK, PRN
     Route: 065
  5. DIASTAT [DIAZEPAM] [Concomitant]
     Indication: SEIZURE
     Dosage: 10 MG, PRN
     Route: 054
  6. ASPIRIN 81 [Concomitant]
     Active Substance: ASPIRIN
     Indication: PRODUCT USED FOR UNKNOWN INDICATION
     Dosage: 1 DOSAGE FORM, QD
  7. KEPPRA [Concomitant]
     Active Substance: LEVETIRACETAM
     Indication: EPILEPSY
     Dosage: 67.1 MG/KG/DAY, 500 MILLIGRAM, BID
  8. EPIDIOLEX [Suspect]
     Active Substance: CANNABIDIOL
     Indication: EPILEPSY
     Dosage: 35 MILLIGRAM, BID
     Dates: start: 2019, end: 20190630

REACTIONS (3)
  - Product use issue [Not Recovered/Not Resolved]
  - Cardiac arrest [Fatal]
  - Gastric infection [Fatal]

NARRATIVE: CASE EVENT DATE: 20190629
